FAERS Safety Report 22314833 (Version 16)
Quarter: 2025Q4

REPORT INFORMATION
  Report Type: Spontaneous
  Country: US (occurrence: US)
  Receive Date: 20230512
  Receipt Date: 20251222
  Transmission Date: 20260118
  Serious: Yes (Other)
  Sender: VERTEX
  Company Number: US-VERTEX PHARMACEUTICALS-2023-006761

PATIENT

DRUGS (3)
  1. TRIKAFTA [Suspect]
     Active Substance: ELEXACAFTOR\IVACAFTOR\TEZACAFTOR
     Indication: Cystic fibrosis
     Dosage: UNKNOWN DOSAGE REGIMEN
     Route: 061
  2. TRIKAFTA [Suspect]
     Active Substance: ELEXACAFTOR\IVACAFTOR\TEZACAFTOR
     Dosage: REDUCED
     Route: 061
  3. MONTELUKAST [Concomitant]
     Active Substance: MONTELUKAST

REACTIONS (17)
  - Hunger [Unknown]
  - Pancreatic disorder [Not Recovered/Not Resolved]
  - Increased insulin requirement [Not Recovered/Not Resolved]
  - Bowel movement irregularity [Recovered/Resolved]
  - Myoclonus [Recovered/Resolved]
  - Nervous system disorder [Not Recovered/Not Resolved]
  - Mental disorder [Recovered/Resolved]
  - Suicidal ideation [Recovered/Resolved]
  - Sedation [Recovered/Resolved]
  - Blood glucose increased [Not Recovered/Not Resolved]
  - Injury [Unknown]
  - Gastrointestinal obstruction [Unknown]
  - Quality of life decreased [Unknown]
  - Pain [Not Recovered/Not Resolved]
  - Cystic fibrosis related diabetes [Unknown]
  - Depression [Recovered/Resolved]
  - Acne [Unknown]
